FAERS Safety Report 8491530-4 (Version None)
Quarter: 2012Q2

REPORT INFORMATION
  Report Type: 
  Country: None (occurrence: None)
  Receive Date: 20120402
  Receipt Date: 20100206
  Transmission Date: 20120825
  Serious: Yes (Other)
  Sender: FDA-Public Use
  Company Number: PHEH2010US02127

PATIENT
  Sex: Female

DRUGS (1)
  1. EXFORGE HCT [Suspect]

REACTIONS (3)
  - RENAL IMPAIRMENT [None]
  - JOINT SWELLING [None]
  - OEDEMA PERIPHERAL [None]
